FAERS Safety Report 15777840 (Version 1)
Quarter: 2018Q4

REPORT INFORMATION
  Report Type: Spontaneous
  Country: US (occurrence: US)
  Receive Date: 20181231
  Receipt Date: 20181231
  Transmission Date: 20190205
  Serious: Yes (Hospitalization)
  Sender: FDA-Public Use
  Company Number: None

PATIENT
  Age: 63 Year
  Sex: Female

DRUGS (6)
  1. CAPECITABINE. [Suspect]
     Active Substance: CAPECITABINE
     Indication: HYPOVITAMINOSIS
     Route: 048
     Dates: start: 20181012
  2. VITAMIN D3 [Concomitant]
     Active Substance: CHOLECALCIFEROL
  3. PROCHLORPER [Concomitant]
  4. GAS-X [Concomitant]
     Active Substance: DIMETHICONE
  5. OMEPRAZOLE. [Concomitant]
     Active Substance: OMEPRAZOLE
  6. ONDANSETRON [Concomitant]
     Active Substance: ONDANSETRON

REACTIONS (1)
  - Hospitalisation [None]

NARRATIVE: CASE EVENT DATE: 20181216
